FAERS Safety Report 18556454 (Version 2)
Quarter: 2021Q1

REPORT INFORMATION
  Report Type: Report from Study
  Country: CO (occurrence: CO)
  Receive Date: 20201128
  Receipt Date: 20210111
  Transmission Date: 20210419
  Serious: Yes (Hospitalization)
  Sender: FDA-Public Use
  Company Number: NVSC2020CO317147

PATIENT
  Age: 89 Year
  Sex: Female
  Weight: 61 kg

DRUGS (6)
  1. COSENTYX [Suspect]
     Active Substance: SECUKINUMAB
     Indication: PSORIASIS
     Dosage: 300 MG, QMO
     Route: 058
     Dates: start: 20180903
  2. RIVAROXABAN [Concomitant]
     Active Substance: RIVAROXABAN
     Indication: ARRHYTHMIA
     Dosage: 15 MG, QD (STARTED 4 YEARS AGO)
     Route: 048
  3. METHYL?DIGOXIN [Concomitant]
     Active Substance: METILDIGOXIN
     Indication: ARRHYTHMIA
     Dosage: 0.1 MG, QD (STARTED 2 YEARS AGO)
     Route: 048
  4. COSENTYX [Suspect]
     Active Substance: SECUKINUMAB
     Dosage: UNK (LAST APPLICATION)
     Route: 065
     Dates: start: 20201230
  5. METOPROLOL. [Suspect]
     Active Substance: METOPROLOL
     Indication: HYPERTENSION
     Dosage: 50 MG, Q12H (2 YEARS AGO)
     Route: 048
  6. ACETYLSALICYLIC ACID [Concomitant]
     Active Substance: ASPIRIN
     Indication: HYPERTENSION
     Dosage: UNK, QD (STARTED 2 YEARS AGO AND DOSE DID NOT REMEMBER)
     Route: 048

REACTIONS (4)
  - Pain in extremity [Recovered/Resolved]
  - Inflammation [Recovered/Resolved]
  - Diabetes mellitus [Unknown]
  - Rotator cuff syndrome [Unknown]

NARRATIVE: CASE EVENT DATE: 20201025
